FAERS Safety Report 23368991 (Version 1)
Quarter: 2024Q1

REPORT INFORMATION
  Report Type: Report from Study
  Country: FR (occurrence: FR)
  Receive Date: 20240105
  Receipt Date: 20240105
  Transmission Date: 20240409
  Serious: Yes (Other)
  Sender: FDA-Public Use
  Company Number: FR-SERVIER-S23014869

PATIENT

DRUGS (12)
  1. PEGASPARGASE [Suspect]
     Active Substance: PEGASPARGASE
     Indication: Acute lymphocytic leukaemia
     Dosage: UNK
     Route: 042
     Dates: end: 20211201
  2. PEGASPARGASE [Suspect]
     Active Substance: PEGASPARGASE
     Dosage: UNK
     Route: 042
     Dates: start: 20220425
  3. DEXAMETHASONE [Suspect]
     Active Substance: DEXAMETHASONE
     Indication: Acute lymphocytic leukaemia
     Dosage: 3 MG, D1 TO D5
     Route: 048
     Dates: start: 20211122, end: 20211126
  4. VINCRISTINE [Suspect]
     Active Substance: VINCRISTINE
     Indication: Acute lymphocytic leukaemia
     Dosage: 0.8 MG, D1
     Route: 042
     Dates: start: 20211122
  5. VINCRISTINE [Suspect]
     Active Substance: VINCRISTINE
     Dosage: 0.8 MG, D15, D43, D50
     Route: 042
     Dates: start: 20211201, end: 20220131
  6. MERCAPTOPURINE [Suspect]
     Active Substance: MERCAPTOPURINE
     Indication: Acute lymphocytic leukaemia
     Dosage: 27.4 MG, D1 TO D9
     Route: 048
     Dates: start: 20211122, end: 20211130
  7. MERCAPTOPURINE [Suspect]
     Active Substance: MERCAPTOPURINE
     Dosage: 40 MG, D1-5
     Route: 048
     Dates: start: 20211201, end: 20220131
  8. METHOTREXATE [Suspect]
     Active Substance: METHOTREXATE
     Indication: Acute lymphocytic leukaemia
     Dosage: 8 MG, D2
     Route: 037
     Dates: start: 20231123
  9. METHOTREXATE [Suspect]
     Active Substance: METHOTREXATE
     Dosage: 8 MG, D31
     Route: 037
     Dates: start: 20220121
  10. CYCLOPHOSPHAMIDE [Suspect]
     Active Substance: CYCLOPHOSPHAMIDE
     Indication: Acute lymphocytic leukaemia
     Dosage: 530 MG, D1-D29
     Route: 042
     Dates: start: 20211201, end: 20220131
  11. CYTARABINE [Suspect]
     Active Substance: CYTARABINE
     Indication: Acute lymphocytic leukaemia
     Dosage: 40 MG, D3-D6, D10-13, D31-34
     Route: 042
     Dates: start: 20211201, end: 20220131
  12. CYTARABINE [Suspect]
     Active Substance: CYTARABINE
     Dosage: 20 MG, D31
     Route: 037
     Dates: start: 20220121

REACTIONS (1)
  - Cholestasis [Recovered/Resolved]

NARRATIVE: CASE EVENT DATE: 20211128
